FAERS Safety Report 6044869-6 (Version None)
Quarter: 2009Q1

REPORT INFORMATION
  Report Type: 
  Country: None (occurrence: None)
  Receive Date: 20090121
  Receipt Date: 20090112
  Transmission Date: 20090719
  Serious: Yes (Death)
  Sender: FDA-Public Use
  Company Number: GR-TEVA-183636ISR

PATIENT
  Age: 51 Year
  Sex: Female

DRUGS (5)
  1. METHOTREXATE [Suspect]
     Indication: T-CELL TYPE ACUTE LEUKAEMIA
     Route: 037
  2. VINCRISTINE [Suspect]
     Indication: T-CELL TYPE ACUTE LEUKAEMIA
  3. DAUNORUBICIN [Suspect]
     Indication: T-CELL TYPE ACUTE LEUKAEMIA
  4. PREDNISONE [Suspect]
     Indication: T-CELL TYPE ACUTE LEUKAEMIA
  5. ASPARAGINASE [Suspect]
     Indication: T-CELL TYPE ACUTE LEUKAEMIA

REACTIONS (1)
  - VENOOCCLUSIVE LIVER DISEASE [None]
